FAERS Safety Report 9245503 (Version 1)
Quarter: 2013Q2

REPORT INFORMATION
  Report Type: Spontaneous
  Country: BR (occurrence: BR)
  Receive Date: 20130422
  Receipt Date: 20130422
  Transmission Date: 20140414
  Serious: Yes (Other)
  Sender: FDA-Public Use
  Company Number: BR-PFIZER INC-2013091753

PATIENT
  Age: 19 Year
  Sex: Female

DRUGS (4)
  1. NORDETTE [Suspect]
     Indication: CONTRACEPTION
     Dosage: 1 DF, 1X/DAY
     Route: 048
     Dates: end: 201012
  2. DORFLEX [Concomitant]
     Indication: HEADACHE
  3. DORIL [Concomitant]
     Indication: HEADACHE
  4. PARACETAMOL [Concomitant]
     Indication: HEADACHE

REACTIONS (2)
  - Convulsion [Unknown]
  - Eclampsia [Recovered/Resolved]
